FAERS Safety Report 7621493-2 (Version None)
Quarter: 2011Q3

REPORT INFORMATION
  Report Type: 
  Country: None (occurrence: None)
  Receive Date: 20110719
  Receipt Date: 20110715
  Transmission Date: 20111222
  Serious: No
  Sender: FDA-Public Use
  Company Number: US-B.I. PHARMACEUTICALS,INC./RIDGEFIELD-2011-BP-00323BP

PATIENT
  Sex: Male

DRUGS (14)
  1. TRAMADOL HCL [Concomitant]
     Indication: NEUROPATHY PERIPHERAL
  2. LISINOPRIL [Concomitant]
     Indication: HYPERTENSION
  3. TESTOSTERONE INJECTION [Concomitant]
     Indication: BLOOD TESTOSTERONE DECREASED
  4. TRICOR [Concomitant]
     Indication: BLOOD CHOLESTEROL INCREASED
  5. NEURONTIN [Concomitant]
     Indication: NEUROPATHY PERIPHERAL
  6. CAMBCOR [Concomitant]
     Indication: ATRIAL FIBRILLATION
  7. PRADAXA [Suspect]
     Indication: PROPHYLAXIS
     Dosage: 300 MG
     Route: 048
     Dates: start: 20110201
  8. PRADAXA [Suspect]
     Indication: ATRIAL FIBRILLATION
  9. ALLOPURINOL [Concomitant]
     Indication: GOUT
  10. DESIPRAMIDE HCL [Concomitant]
     Indication: NEUROPATHY PERIPHERAL
  11. CLONAZEPAM [Concomitant]
     Indication: RESTLESS LEGS SYNDROME
  12. LORTAB [Concomitant]
     Indication: PAIN
  13. METFORMIN HCL [Concomitant]
     Indication: DIABETES MELLITUS
  14. MINOCYCLINE HCL [Concomitant]
     Indication: SKIN INFECTION

REACTIONS (4)
  - DIZZINESS [None]
  - FATIGUE [None]
  - ASTHENIA [None]
  - BLOOD PRESSURE DECREASED [None]
